FAERS Safety Report 10079498 (Version 2)
Quarter: 2014Q2

REPORT INFORMATION
  Report Type: Spontaneous
  Country: US (occurrence: US)
  Receive Date: 20140415
  Receipt Date: 20140415
  Transmission Date: 20141212
  Serious: Yes (Other)
  Sender: FDA-Public Use
  Company Number: US-PFIZER INC-2014089223

PATIENT
  Age: 62 Year
  Sex: Female
  Weight: 88.44 kg

DRUGS (3)
  1. LIPITOR [Suspect]
     Indication: BLOOD CHOLESTEROL INCREASED
     Dosage: 40 MG, DAILY
     Dates: start: 1999
  2. ASPIRIN [Concomitant]
     Indication: CORONARY ARTERY DISEASE
     Dosage: 81 MG, DAILY
  3. ADVAIR [Concomitant]
     Indication: ASTHMA
     Dosage: [FLUTICASONE PROPIONATE 250MCG]/[SALMETEROL 50MCG], 2X/DAY

REACTIONS (3)
  - Cataract [Unknown]
  - Alopecia [Unknown]
  - Drug dispensing error [Unknown]
